FAERS Safety Report 22014907 (Version 1)
Quarter: 2023Q1

REPORT INFORMATION
  Report Type: Spontaneous
  Country: CN (occurrence: None)
  Receive Date: 20230221
  Receipt Date: 20230221
  Transmission Date: 20230417
  Serious: Yes (Other)
  Sender: FDA-Public Use
  Company Number: CN-ROCHE-3288147

PATIENT
  Age: 75 Year
  Sex: Male

DRUGS (6)
  1. GAZYVA [Suspect]
     Active Substance: OBINUTUZUMAB
     Indication: Mantle cell lymphoma
     Route: 065
     Dates: start: 20220112
  2. GAZYVA [Suspect]
     Active Substance: OBINUTUZUMAB
     Dosage: 19/JAN/2022, 26/JAN/2022, 09/FEB/2022
     Route: 065
  3. GAZYVA [Suspect]
     Active Substance: OBINUTUZUMAB
     Dosage: 09/MAR/2022, 07/APR/2022, 05/MAY/2022, 09/JUN/2022, 14/JUL/2022, 24/AUG/2022, 22/OCT/2022, 29/NOV/20
     Route: 065
  4. ZANUBRUTINIB [Concomitant]
     Active Substance: ZANUBRUTINIB
     Indication: Mantle cell lymphoma
     Dates: start: 20220112
  5. ZANUBRUTINIB [Concomitant]
     Active Substance: ZANUBRUTINIB
     Dosage: 19/JAN/2022, 26/JAN/2022, 09/FEB/2022
  6. ZANUBRUTINIB [Concomitant]
     Active Substance: ZANUBRUTINIB
     Dosage: 09/MAR/2022, 07/APR/2022, 05/MAY/2022, 09/JUN/2022, 14/JUL/2022, 24/AUG/2022, 22/OCT/2022, 29/NOV/20

REACTIONS (7)
  - Off label use [Unknown]
  - Tachypnoea [Unknown]
  - Pyrexia [Unknown]
  - Temperature intolerance [Unknown]
  - Chills [Unknown]
  - Herpes zoster [Unknown]
  - COVID-19 pneumonia [Unknown]

NARRATIVE: CASE EVENT DATE: 20220112
